FAERS Safety Report 6614962-5 (Version None)
Quarter: 2010Q1

REPORT INFORMATION
  Report Type: 
  Country: None (occurrence: None)
  Receive Date: 20100305
  Receipt Date: 20100224
  Transmission Date: 20100710
  Serious: Yes (Other)
  Sender: FDA-Public Use
  Company Number: CA-JNJFOC-20100300228

PATIENT
  Sex: Male
  Weight: 77 kg

DRUGS (6)
  1. SIMPONI [Suspect]
     Indication: DRUG USE FOR UNKNOWN INDICATION
     Route: 058
  2. METHOTREXATE [Concomitant]
     Route: 058
  3. ARAVA [Concomitant]
  4. PLAQUENIL [Concomitant]
  5. CELEBREX [Concomitant]
  6. FOLIC ACID [Concomitant]

REACTIONS (2)
  - NASOPHARYNGITIS [None]
  - SYNCOPE [None]
